FAERS Safety Report 21227642 (Version 1)
Quarter: 2022Q3

REPORT INFORMATION
  Report Type: Spontaneous
  Country: US (occurrence: None)
  Receive Date: 20220817
  Receipt Date: 20220817
  Transmission Date: 20221026
  Serious: Yes (Hospitalization)
  Sender: FDA-Public Use
  Company Number: None

PATIENT
  Age: 58 Year
  Sex: Male

DRUGS (1)
  1. CAPECITABINE [Suspect]
     Active Substance: CAPECITABINE
     Dosage: FREQUENCY : TWICE A DAY;?
     Route: 048

REACTIONS (6)
  - Decreased appetite [None]
  - White blood cell count decreased [None]
  - Platelet count decreased [None]
  - Red blood cell count decreased [None]
  - Weight decreased [None]
  - Tumour marker increased [None]

NARRATIVE: CASE EVENT DATE: 20220817
